FAERS Safety Report 7173965-5 (Version None)
Quarter: 2010Q4

REPORT INFORMATION
  Report Type: 
  Country: None (occurrence: None)
  Receive Date: 20101202
  Receipt Date: 20101117
  Transmission Date: 20110411
  Serious: Yes (Hospitalization)
  Sender: FDA-Public Use
  Company Number: 2010AM003418

PATIENT
  Age: 66 Year
  Sex: Female
  Weight: 110.2241 kg

DRUGS (12)
  1. SYMLIN [Suspect]
     Indication: TYPE 2 DIABETES MELLITUS
     Dosage: 60 MCG; TID; SC
     Route: 058
     Dates: start: 20101117
  2. SYMLIN [Suspect]
     Indication: TYPE 2 DIABETES MELLITUS
     Dosage: 120 MCG; SC, 18 MCG; SC
     Route: 058
     Dates: end: 20100101
  3. LANTUS [Concomitant]
  4. HUMALOG [Concomitant]
  5. GLIMEPIRIDE [Concomitant]
  6. METFORMIN HCL [Concomitant]
  7. LIPITOR [Concomitant]
  8. METOPROLOL [Concomitant]
  9. LISINOPRIL AND HYDROCHLOROTHIAZIDE [Concomitant]
  10. LANSOPRAZOLE [Concomitant]
  11. TRAZODONE HCL [Concomitant]
  12. FOLIC ACID [Concomitant]

REACTIONS (15)
  - ACTIVITIES OF DAILY LIVING IMPAIRED [None]
  - ANXIETY [None]
  - BLOOD GLUCOSE INCREASED [None]
  - CHONDROPATHY [None]
  - DIABETIC NEUROPATHY [None]
  - HEART RATE INCREASED [None]
  - IRON DEFICIENCY [None]
  - MENISCUS LESION [None]
  - SCIATIC NERVE NEUROPATHY [None]
  - THYROID DISORDER [None]
  - TIBIA FRACTURE [None]
  - TREMOR [None]
  - WEIGHT DECREASED [None]
  - WEIGHT FLUCTUATION [None]
  - WEIGHT INCREASED [None]
